FAERS Safety Report 16746704 (Version 1)
Quarter: 2019Q3

REPORT INFORMATION
  Report Type: Spontaneous
  Country: DE (occurrence: DE)
  Receive Date: 20190827
  Receipt Date: 20190827
  Transmission Date: 20191005
  Serious: Yes (Other)
  Sender: FDA-Public Use
  Company Number: DE-009507513-1908DEU007459

PATIENT
  Sex: Female
  Weight: 126 kg

DRUGS (8)
  1. CEPHALORIDINE [Suspect]
     Active Substance: CEPHALORIDINE
     Dosage: 1 DF, QD
     Dates: start: 20170201
  2. CANDESARTAN ZENTIVA [Suspect]
     Active Substance: CANDESARTAN CILEXETIL
     Dosage: 1 DF, QD
     Route: 065
     Dates: start: 20190718
  3. MULTAQ [Suspect]
     Active Substance: DRONEDARONE
     Dosage: 2 DF, QD
     Route: 065
     Dates: start: 20170201
  4. SIMVASTATIN. [Suspect]
     Active Substance: SIMVASTATIN
     Dosage: 5 DF, QD
     Route: 065
  5. METOPROLOL. [Suspect]
     Active Substance: METOPROLOL
     Dosage: 2 DF, QD
     Route: 065
     Dates: start: 20170201
  6. CERAZETTE [DESOGESTREL] [Suspect]
     Active Substance: DESOGESTREL
     Dosage: 1 DF, QD
     Route: 065
     Dates: start: 20170201
  7. OPIPRAMOL HYDROCHLORIDE [Suspect]
     Active Substance: OPIPRAMOL HYDROCHLORIDE
     Dosage: 2 DF, QD
     Route: 065
     Dates: start: 20170201
  8. ELIQUIS [Suspect]
     Active Substance: APIXABAN
     Dosage: 2 PIECES DAILY
     Route: 065
     Dates: start: 20170201

REACTIONS (2)
  - Dyspnoea [Unknown]
  - Arrhythmia [Unknown]

NARRATIVE: CASE EVENT DATE: 20150115
